FAERS Safety Report 5303545-5 (Version None)
Quarter: 2007Q2

REPORT INFORMATION
  Report Type: 
  Country: None (occurrence: None)
  Receive Date: 20070420
  Receipt Date: 20070413
  Transmission Date: 20071010
  Serious: Yes (Hospitalization)
  Sender: FDA-Public Use
  Company Number: IL-ROXANE LABORATORIES, INC-2007-BP-05278RO

PATIENT
  Age: 61 Year
  Sex: Female

DRUGS (5)
  1. FLUCONAZOLE [Suspect]
     Indication: SYSTEMIC CANDIDA
     Dosage: 200 MG/DAY X 3 MONTHS
     Route: 048
  2. MITOXANTRONE [Suspect]
     Indication: ACUTE MYELOID LEUKAEMIA
     Dosage: 36 MG/M2 (TOTAL DOSE)
  3. GLIBENCLAMIDE [Concomitant]
  4. LEVOTHYROXINE SODIUM [Concomitant]
  5. CANDESARTAN [Concomitant]

REACTIONS (4)
  - ELECTROCARDIOGRAM QT PROLONGED [None]
  - PALPITATIONS [None]
  - SYNCOPE [None]
  - TORSADE DE POINTES [None]
